FAERS Safety Report 8960445 (Version 1)
Quarter: 2012Q4

REPORT INFORMATION
  Report Type: Spontaneous
  Country: US (occurrence: None)
  Receive Date: 20121211
  Receipt Date: 20121211
  Transmission Date: 20130627
  Serious: No
  Sender: FDA-Public Use
  Company Number: None

PATIENT
  Age: 40 Year
  Sex: Female
  Weight: 94.8 kg

DRUGS (1)
  1. TEMOZOLOMIDE [Suspect]
     Indication: METASTATIC MELANOMA
     Dates: start: 20121109, end: 20121113

REACTIONS (2)
  - Impaired healing [None]
  - Soft tissue necrosis [None]
